FAERS Safety Report 16298356 (Version 2)
Quarter: 2019Q2

REPORT INFORMATION
  Report Type: Spontaneous
  Country: ES (occurrence: ES)
  Receive Date: 20190510
  Receipt Date: 20190612
  Transmission Date: 20190711
  Serious: Yes (Other)
  Sender: FDA-Public Use
  Company Number: ES-B.I. PHARMACEUTICALS,INC./RIDGEFIELD-2019-12-001515

PATIENT
  Age: 66 Year
  Sex: Female

DRUGS (4)
  1. ZOMARIST [Concomitant]
     Active Substance: VILDAGLIPTIN
     Indication: DIABETES MELLITUS
     Dosage: 1 CADA 12 HORAS; 50 MG/1000 MG COMPRIMIDOS RECUBIERTOS CON PELICULA, 60 CO
     Route: 048
     Dates: start: 20170509
  2. CAPENON HCT [Concomitant]
     Active Substance: AMLODIPINE BESYLATE\HYDROCHLOROTHIAZIDE\OLMESARTAN MEDOXOMIL
     Indication: HYPERTENSION
     Dosage: 1 CDA 24 HORAS; 40 MG/10 MG/25 MG COMPRIMIDOS RECUBIERTOS CON PELICULA
     Route: 048
     Dates: start: 20170509
  3. JARDIANCE [Suspect]
     Active Substance: EMPAGLIFLOZIN
     Indication: DIABETES MELLITUS
     Dosage: 1 CADA 24 HORAS; COMPRIMIDOS RECUBIERTOS CON PELICULA 30 COMPRIMIDOS
     Route: 048
     Dates: start: 20170509, end: 20181025
  4. CARDYL [Concomitant]
     Active Substance: ATORVASTATIN CALCIUM
     Indication: HYPERCHOLESTEROLAEMIA
     Dosage: 1 CADA 24 HORAS; COMPRIMIDOS RECUBIERTOS CON PELICULA, 28 COMPRIMIDOS
     Route: 048
     Dates: start: 20170509

REACTIONS (1)
  - Blood test abnormal [Unknown]

NARRATIVE: CASE EVENT DATE: 20190410
